FAERS Safety Report 23504911 (Version 1)
Quarter: 2024Q1

REPORT INFORMATION
  Report Type: Spontaneous
  Country: PE (occurrence: PE)
  Receive Date: 20240209
  Receipt Date: 20240209
  Transmission Date: 20240410
  Serious: No
  Sender: FDA-Public Use
  Company Number: None

PATIENT
  Age: 44 Year
  Sex: Female

DRUGS (5)
  1. GABAPENTIN [Suspect]
     Active Substance: GABAPENTIN
     Indication: New daily persistent headache
     Dosage: 600 MILLIGRAM
     Route: 065
  2. DESVENLAFAXINE [Concomitant]
     Active Substance: DESVENLAFAXINE
     Indication: New daily persistent headache
     Dosage: 100 MILLIGRAM
     Route: 065
  3. MELATONIN [Concomitant]
     Active Substance: MELATONIN
     Indication: New daily persistent headache
     Dosage: 3 MILLIGRAM
     Route: 065
  4. PROPRANOLOL [Concomitant]
     Active Substance: PROPRANOLOL HYDROCHLORIDE
     Indication: New daily persistent headache
     Dosage: 40 MILLIGRAM
     Route: 065
  5. TOPIRAMATE [Concomitant]
     Active Substance: TOPIRAMATE
     Indication: New daily persistent headache
     Dosage: 50 MILLIGRAM
     Route: 065

REACTIONS (2)
  - Dizziness [Unknown]
  - Somnolence [Unknown]
